FAERS Safety Report 8049382 (Version 3)
Quarter: 2012Q4

REPORT INFORMATION
  Report Type: 
  Country: US (occurrence: US)
  Receive Date: 20110722
  Receipt Date: 20120904
  Transmission Date: 20130627
  Serious: Yes (Other)
  Sender: FDA-Public Use
  Company Number: US-BAYER-2011-063092

PATIENT
  Age: 26 Year
  Sex: Female
  Weight: 68 kg

DRUGS (8)
  1. OCELLA [Suspect]
     Indication: CONTRACEPTION
     Dosage: UNK
     Dates: start: 200808, end: 2010
  2. IBUPROFEN [Concomitant]
     Dosage: UNK UNK, PRN
     Dates: start: 2005
  3. GABAPENTIN [Concomitant]
     Indication: NEUROPATHY PERIPHERAL
  4. CLONAZEPAM [Concomitant]
     Indication: DEPRESSION
  5. CLONAZEPAM [Concomitant]
     Indication: ANXIETY
  6. BUPROPION [Concomitant]
  7. LAMICTAL [Concomitant]
     Dosage: 200 mg / 1 ? QD (interpreted as every day)
     Dates: start: 20090317
  8. WELLBUTRIN XL [Concomitant]
     Dosage: 150 mg [three] QD
     Dates: start: 20090317

REACTIONS (6)
  - Cholecystitis chronic [None]
  - Nausea [None]
  - Abdominal pain [None]
  - Quality of life decreased [None]
  - Pain [None]
  - Injury [None]
